FAERS Safety Report 10881338 (Version 3)
Quarter: 2015Q2

REPORT INFORMATION
  Report Type: Spontaneous
  Country: JP (occurrence: JP)
  Receive Date: 20150303
  Receipt Date: 20150529
  Transmission Date: 20150821
  Serious: Yes (Hospitalization, Other)
  Sender: FDA-Public Use
  Company Number: PHJP2015JP002290

PATIENT
  Age: 49 Year
  Sex: Male
  Weight: 56 kg

DRUGS (1)
  1. NEORAL [Suspect]
     Active Substance: CYCLOSPORINE
     Indication: PSORIASIS
     Dosage: 100 MG, QD (IN THE MORNING)
     Route: 048
     Dates: start: 2011, end: 20150108

REACTIONS (19)
  - Neuromyotonia [Unknown]
  - Fall [Unknown]
  - Psoriasis [Unknown]
  - Musculoskeletal stiffness [Recovering/Resolving]
  - Feeling abnormal [Unknown]
  - Dizziness [Unknown]
  - Joint dislocation [Not Recovered/Not Resolved]
  - Blood uric acid decreased [Unknown]
  - Cough [Unknown]
  - Rash [Unknown]
  - Metabolic acidosis [Unknown]
  - Hyperventilation [Recovering/Resolving]
  - Depressed level of consciousness [Unknown]
  - Electrocardiogram QT prolonged [Unknown]
  - Blood pressure increased [Recovering/Resolving]
  - Eye disorder [Recovered/Resolved]
  - Myoclonus [Not Recovered/Not Resolved]
  - Tachypnoea [Unknown]
  - Aphasia [Unknown]

NARRATIVE: CASE EVENT DATE: 20150108
